FAERS Safety Report 18215465 (Version 1)
Quarter: 2020Q3

REPORT INFORMATION
  Report Type: Spontaneous
  Country: US (occurrence: US)
  Receive Date: 20200831
  Receipt Date: 20200831
  Transmission Date: 20201103
  Serious: Yes (Hospitalization)
  Sender: FDA-Public Use
  Company Number: US-COEPTIS PHARMACEUTICALS, INC.-COE-2020-000001

PATIENT
  Age: 19 Year
  Sex: Female

DRUGS (2)
  1. AMLODIPINE [Suspect]
     Active Substance: AMLODIPINE BESYLATE
  2. CALCIUM GLUCONATE. [Suspect]
     Active Substance: CALCIUM GLUCONATE
     Indication: OVERDOSE
     Dosage: 10.5 G (TOTAL CG; 6 HRS AFTER PRESENTATION)

REACTIONS (7)
  - Vomiting [Unknown]
  - Abdominal pain [Unknown]
  - Anxiety [Unknown]
  - Tachycardia [Unknown]
  - Drug level above therapeutic [Unknown]
  - Tachypnoea [Unknown]
  - Intentional overdose [Unknown]
